FAERS Safety Report 4650397-2 (Version None)
Quarter: 2005Q2

REPORT INFORMATION
  Report Type: 
  Country: None (occurrence: None)
  Receive Date: 20050429
  Receipt Date: 20050425
  Transmission Date: 20051028
  Serious: Yes (Hospitalization)
  Sender: FDA-Public Use
  Company Number: 2004-BP-14357NB

PATIENT
  Age: 82 Year
  Sex: Female

DRUGS (7)
  1. MICARDIS [Suspect]
     Indication: ESSENTIAL HYPERTENSION
     Dosage: 40 MG, PO
     Route: 048
     Dates: start: 20040220, end: 20041015
  2. SPELEAR (FUDOSTEINE) (TA) [Suspect]
     Indication: BRONCHITIS CHRONIC
     Dosage: 12 MG PO
     Route: 048
     Dates: start: 20030905
  3. NEUQUINON (UBIDECARENONE) [Concomitant]
  4. PURSENND [Concomitant]
  5. DASEN (SERRAPEPTASE) [Concomitant]
  6. SHIMBU-TO [Concomitant]
  7. MEXETIL (MEXILETINE HYDROCHLORIDE) [Suspect]
     Indication: EXTRASYSTOLES
     Dosage: 200 MG
     Route: 048
     Dates: start: 20030525

REACTIONS (1)
  - VERTIGO [None]
